FAERS Safety Report 4688663-7 (Version None)
Quarter: 2005Q2

REPORT INFORMATION
  Report Type: 
  Country: None (occurrence: None)
  Receive Date: 20050610
  Receipt Date: 20050610
  Transmission Date: 20051028
  Serious: No
  Sender: FDA-Public Use
  Company Number: None

PATIENT
  Age: 53 Year
  Sex: Male
  Weight: 74 kg

DRUGS (7)
  1. LAMICATAL 25 MG GLAXO [Suspect]
     Indication: BIPOLAR I DISORDER
     Dosage: 50 MG BEDTIME ORAL
     Route: 048
     Dates: start: 20050304, end: 20050319
  2. TYLENOL [Concomitant]
  3. CELEXA [Concomitant]
  4. LORATADINE [Concomitant]
  5. M.V.I. [Concomitant]
  6. OMEPRAZOLE [Concomitant]
  7. RISPERIDONE [Concomitant]

REACTIONS (3)
  - BLISTER [None]
  - FATIGUE [None]
  - NAUSEA [None]
